FAERS Safety Report 9311091 (Version 1)
Quarter: 2013Q2

REPORT INFORMATION
  Report Type: Spontaneous
  Country: US (occurrence: US)
  Receive Date: 20130528
  Receipt Date: 20130528
  Transmission Date: 20140414
  Serious: No
  Sender: FDA-Public Use
  Company Number: US-PFIZER INC-2013159299

PATIENT
  Age: 68 Year
  Sex: Male
  Weight: 120.18 kg

DRUGS (5)
  1. LYRICA [Suspect]
     Indication: DIABETIC NEUROPATHY
     Dosage: ONE PILL A DAY FOR A WEEK
  2. LYRICA [Suspect]
     Dosage: TWO A DAY FOR A WEEK
  3. LYRICA [Suspect]
     Dosage: 3 A DAY
  4. LYRICA [Suspect]
     Dosage: 50 MG, 3X/DAY
     Dates: start: 2013
  5. LYRICA [Suspect]
     Dosage: 50 MG, 2X/DAY

REACTIONS (3)
  - Sensory loss [Unknown]
  - Impaired driving ability [Unknown]
  - Intentional drug misuse [Unknown]
